FAERS Safety Report 7237581-9 (Version None)
Quarter: 2011Q1

REPORT INFORMATION
  Report Type: 
  Country: None (occurrence: None)
  Receive Date: 20110118
  Receipt Date: 20101231
  Transmission Date: 20110831
  Serious: Yes (Hospitalization)
  Sender: FDA-Public Use
  Company Number: 2011000017

PATIENT
  Age: 75 Year
  Sex: Female
  Weight: 54 kg

DRUGS (4)
  1. SORAFENIB [Suspect]
     Indication: BILE DUCT CANCER
     Dosage: (400 MG,BID),ORAL
     Route: 048
     Dates: start: 20101203, end: 20101213
  2. ERLOTINIB (ERLOTINIB) (TABLET) (ERLOTINIB) [Suspect]
     Indication: BILE DUCT CANCER
     Dosage: (100 MG,QD),ORAL ; (100 MG,QD),ORAL
     Route: 048
     Dates: start: 20101203, end: 20101213
  3. ERLOTINIB (ERLOTINIB) (TABLET) (ERLOTINIB) [Suspect]
     Indication: BILE DUCT CANCER
     Dosage: (100 MG,QD),ORAL ; (100 MG,QD),ORAL
     Route: 048
     Dates: start: 20101222, end: 20101228
  4. DYAZIDE [Suspect]
     Dates: start: 20101209

REACTIONS (4)
  - HYPERSENSITIVITY [None]
  - ERYTHEMA MULTIFORME [None]
  - DEHYDRATION [None]
  - DIZZINESS [None]
